FAERS Safety Report 13881511 (Version 1)
Quarter: 2017Q3

REPORT INFORMATION
  Report Type: Spontaneous
  Country: US (occurrence: US)
  Receive Date: 20170818
  Receipt Date: 20170818
  Transmission Date: 20171127
  Serious: No
  Sender: FDA-Public Use
  Company Number: US-PFIZER INC-2017357023

PATIENT
  Age: 79 Year
  Sex: Female

DRUGS (1)
  1. ADVIL [Suspect]
     Active Substance: IBUPROFEN
     Indication: INFLAMMATION
     Dosage: 1 DF, 1X/DAY AT NIGHT
     Route: 048

REACTIONS (4)
  - Bradyphrenia [Unknown]
  - Drug ineffective [Unknown]
  - Somnolence [Unknown]
  - Intentional product misuse [Unknown]
